FAERS Safety Report 14854116 (Version 1)
Quarter: 2018Q2

REPORT INFORMATION
  Report Type: Spontaneous
  Country: US (occurrence: US)
  Receive Date: 20180420
  Receipt Date: 20180420
  Transmission Date: 20180711
  Serious: No
  Sender: FDA-Public Use
  Company Number: None

PATIENT
  Age: 80 Year
  Sex: Female
  Weight: 58.06 kg

DRUGS (9)
  1. CIPRO [Suspect]
     Active Substance: CIPROFLOXACIN HYDROCHLORIDE
     Indication: COLITIS
     Dosage: ?          OTHER FREQUENCY:6 BAGS A DAY;?
     Route: 042
     Dates: start: 20170812, end: 20170817
  2. VITAMIN D3 [Concomitant]
     Active Substance: CHOLECALCIFEROL
  3. PRO FERRIN-FORTE [Concomitant]
  4. PROBIOTIC [Concomitant]
     Active Substance: PROBIOTICS NOS
  5. OSTEO BI-FLEX [Concomitant]
     Active Substance: CHONDROITIN SULFATE A\GLUCOSAMINE
  6. LISINAPRIL 15MG [Concomitant]
  7. FAMOTIDINE. [Concomitant]
     Active Substance: FAMOTIDINE
  8. MELOXICAN 15MG [Concomitant]
  9. ESTRADIOL 0.5MG [Concomitant]

REACTIONS (5)
  - Insomnia [None]
  - Pain in extremity [None]
  - Neck pain [None]
  - Musculoskeletal pain [None]
  - Drug ineffective [None]

NARRATIVE: CASE EVENT DATE: 20170812
